FAERS Safety Report 25224801 (Version 1)
Quarter: 2025Q2

REPORT INFORMATION
  Report Type: Spontaneous
  Country: US (occurrence: US)
  Receive Date: 20250422
  Receipt Date: 20250422
  Transmission Date: 20250716
  Serious: Yes (Death, Hospitalization)
  Sender: AMGEN
  Company Number: US-AMGEN-USASP2025075917

PATIENT
  Age: 63 Year
  Sex: Female

DRUGS (1)
  1. PREDNISONE [Suspect]
     Active Substance: PREDNISONE
     Indication: Lymphadenopathy mediastinal
     Route: 065

REACTIONS (2)
  - Death [Fatal]
  - Adenocarcinoma gastric [Unknown]
